FAERS Safety Report 19700082 (Version 4)
Quarter: 2022Q1

REPORT INFORMATION
  Report Type: Spontaneous
  Country: DE (occurrence: DE)
  Receive Date: 20210813
  Receipt Date: 20220217
  Transmission Date: 20220423
  Serious: Yes (Other)
  Sender: FDA-Public Use
  Company Number: NVSC2021DE011263

PATIENT
  Age: 57 Year
  Sex: Female
  Weight: 59 kg

DRUGS (18)
  1. DOCETAXEL [Suspect]
     Active Substance: DOCETAXEL
     Indication: Breast cancer
     Dosage: 120 MG (DATE OF LAST DOSE (118 MG) APPLICATION PRIOR EVENT 10/DEC/2020DATE OF LAST DOSE (118 MG) APP
     Route: 065
     Dates: start: 20201118, end: 20210104
  2. ZOLEDRONIC ACID [Suspect]
     Active Substance: ZOLEDRONIC ACID
     Indication: Metastases to bone
     Dosage: UNK, 4W (2ND DOSE ON 16/DEC/2020 AND 3RD DOSE ON 13/JAN/2021. DATE OF LAST DOSE (4 MG) APPLICATION P
     Route: 065
     Dates: start: 20201118
  3. TRASTUZUMAB [Suspect]
     Active Substance: TRASTUZUMAB
     Indication: Breast cancer
     Dosage: 336 MG (DATE OF LAST DOSE (336 MG) APPLICATION PRIOR EVENT: 10/DEC/2020 DATE OF LAST DOSE (336 MG) A
     Route: 041
     Dates: start: 20201210, end: 20210328
  4. TRASTUZUMAB [Suspect]
     Active Substance: TRASTUZUMAB
     Dosage: 336 MG (DATE OF MOST RECENT DOSE PRIOR TO AE 20/JUL/2021: 326 MG)
     Route: 041
     Dates: start: 20210518
  5. PERTUZUMAB [Suspect]
     Active Substance: PERTUZUMAB
     Indication: Breast cancer
     Dosage: DATE OF DOSE (420 MG) LAST APPLICATION PRIOR EVENT: 10/DEC/2020DATE OF DOSE (420 MG) LAST APPLICATIO
     Route: 065
     Dates: start: 20201210, end: 20210328
  6. PERTUZUMAB [Suspect]
     Active Substance: PERTUZUMAB
     Dosage: DATE OF MOST RECENT DOSE PRIOR TO AE 20/JUL/2021: 420 MG
     Route: 065
     Dates: start: 20210518
  7. CALCIUM\CHOLECALCIFEROL [Concomitant]
     Active Substance: CALCIUM\CHOLECALCIFEROL
     Indication: Product used for unknown indication
     Dosage: CALCIUM 500 MG / VITAMIN D 400 IU DAILY
     Route: 048
     Dates: start: 20201118
  8. CALCIUM\CHOLECALCIFEROL [Concomitant]
     Active Substance: CALCIUM\CHOLECALCIFEROL
     Dosage: 400 IU, QD
     Route: 048
     Dates: start: 20201118
  9. OMEPRAZOLE [Concomitant]
     Active Substance: OMEPRAZOLE
     Indication: Product used for unknown indication
     Dosage: 20 MG
     Route: 048
     Dates: start: 20210104, end: 20210109
  10. DEXAMETHASONE [Concomitant]
     Active Substance: DEXAMETHASONE
     Indication: Product used for unknown indication
     Dosage: 32 MG
     Route: 048
     Dates: start: 20201117, end: 20210106
  11. DEXAMETHASONE [Concomitant]
     Active Substance: DEXAMETHASONE
     Dosage: 8 MG
     Route: 042
     Dates: start: 20201118, end: 20210104
  12. DIMETHINDENE MALEATE [Concomitant]
     Active Substance: DIMETHINDENE MALEATE
     Indication: Product used for unknown indication
     Dosage: 4 MG
     Route: 042
     Dates: start: 20201118, end: 20210104
  13. GYNOMUNAL [Concomitant]
     Indication: Product used for unknown indication
     Dosage: 2.5 MG
     Route: 061
     Dates: start: 20210208, end: 20210222
  14. METAMIZOLE [Concomitant]
     Active Substance: METAMIZOLE
     Indication: Product used for unknown indication
     Dosage: 500 MG
     Route: 048
     Dates: start: 20210104, end: 20210109
  15. BISOPROLOL [Concomitant]
     Active Substance: BISOPROLOL
     Indication: Product used for unknown indication
     Dosage: 2.5 MG (0.5 DAY)
     Route: 048
     Dates: start: 20210709
  16. ELIQUIS [Concomitant]
     Active Substance: APIXABAN
     Indication: Product used for unknown indication
     Dosage: 5 MG (0.5 DAY)
     Route: 048
     Dates: start: 20210709
  17. BEPANTHEN [Concomitant]
     Indication: Product used for unknown indication
     Dosage: UNK
     Route: 061
     Dates: start: 20210622
  18. SEA SALT [Concomitant]
     Active Substance: SEA SALT
     Indication: Product used for unknown indication
     Dosage: UNK
     Route: 045
     Dates: start: 20211026

REACTIONS (9)
  - Atrial fibrillation [Recovered/Resolved]
  - Abdominal pain upper [Recovered/Resolved]
  - Anaemia [Recovered/Resolved]
  - Osteochondrosis [Not Recovered/Not Resolved]
  - Back pain [Not Recovered/Not Resolved]
  - Vulvovaginal dryness [Recovered/Resolved]
  - Left ventricular dysfunction [Recovered/Resolved]
  - Dysgeusia [Recovered/Resolved]
  - Dry skin [Not Recovered/Not Resolved]

NARRATIVE: CASE EVENT DATE: 20201217
